FAERS Safety Report 23735815 (Version 3)
Quarter: 2024Q3

REPORT INFORMATION
  Report Type: Spontaneous
  Country: US (occurrence: US)
  Receive Date: 20240412
  Receipt Date: 20240813
  Transmission Date: 20241016
  Serious: Yes (Hospitalization, Other)
  Sender: HIKMA
  Company Number: US-HIKMA PHARMACEUTICALS USA INC.-US-H14001-24-02901

PATIENT
  Sex: Male
  Weight: 92.1 kg

DRUGS (6)
  1. MERCAPTOPURINE [Suspect]
     Active Substance: MERCAPTOPURINE
     Indication: B-cell type acute leukaemia
     Dosage: 75 MG DAILY M-TH, 100MG DAILY F-SU
     Route: 048
     Dates: start: 20220108, end: 20240309
  2. METHOTREXATE [Suspect]
     Active Substance: METHOTREXATE
     Indication: B-cell type acute leukaemia
     Dosage: 42.5 MILLIGRAM, WEEKLY
     Route: 048
     Dates: start: 20220118, end: 20240314
  3. PREDNISONE [Suspect]
     Active Substance: PREDNISONE
     Indication: B-cell type acute leukaemia
     Dosage: 45 MG DAILY IN AM, 40 MG DAILY IN PM (D1-5, D29-33, D57-61)
     Route: 048
     Dates: start: 20221107
  4. RUXOLITINIB PHOSPHATE [Suspect]
     Active Substance: RUXOLITINIB PHOSPHATE
     Indication: B-cell type acute leukaemia
     Dosage: 100 MILLIGRAM, BID, D1-14, D29-43, D57-71
     Route: 048
     Dates: start: 20220118, end: 20240314
  5. VINCRISTINE [Suspect]
     Active Substance: VINCRISTINE
     Indication: B-cell type acute leukaemia
     Dosage: 2 MILLIGRAM, 4W,  D1, D29, D57
     Route: 042
     Dates: start: 20230201
  6. FLUCONAZOLE [Concomitant]
     Active Substance: FLUCONAZOLE
     Indication: Product used for unknown indication
     Dosage: UNKNOWN
     Route: 065
     Dates: start: 20240103

REACTIONS (13)
  - Meningitis cryptococcal [Unknown]
  - Pyrexia [Recovered/Resolved]
  - Flank pain [Recovered/Resolved]
  - Dysuria [Recovered/Resolved]
  - Anaemia [Recovered/Resolved with Sequelae]
  - Platelet count decreased [Recovered/Resolved with Sequelae]
  - Epistaxis [Recovered/Resolved with Sequelae]
  - Hypophagia [Unknown]
  - Adenovirus infection [Unknown]
  - Hyperhidrosis [Unknown]
  - Eyelid ptosis [Recovered/Resolved with Sequelae]
  - Eyelid function disorder [Recovered/Resolved with Sequelae]
  - Cryptococcal cutaneous infection [Unknown]

NARRATIVE: CASE EVENT DATE: 20231210
